FAERS Safety Report 5692481-0 (Version None)
Quarter: 2008Q2

REPORT INFORMATION
  Report Type: 
  Country: None (occurrence: None)
  Receive Date: 20080402
  Receipt Date: 20080327
  Transmission Date: 20081010
  Serious: Yes (Hospitalization)
  Sender: FDA-Public Use
  Company Number: CH-ASTRAZENECA-2008PK00670

PATIENT
  Age: 85 Year
  Sex: Female
  Weight: 67.2 kg

DRUGS (8)
  1. TENORMIN [Suspect]
     Route: 048
  2. DIGOXIN [Interacting]
     Route: 048
     Dates: end: 20080207
  3. MARCUMAR [Concomitant]
     Route: 048
  4. DIOVAN [Concomitant]
     Route: 048
  5. ALLOPURINOL [Concomitant]
     Route: 048
  6. NORVASC [Concomitant]
     Route: 048
  7. TOREM [Concomitant]
     Route: 048
  8. SEROQUEL [Concomitant]
     Route: 048

REACTIONS (4)
  - ATRIAL FIBRILLATION [None]
  - BRADYCARDIA [None]
  - DRUG INTERACTION [None]
  - EXTRASYSTOLES [None]
